FAERS Safety Report 13427636 (Version 1)
Quarter: 2017Q2

REPORT INFORMATION
  Report Type: Spontaneous
  Country: US (occurrence: US)
  Receive Date: 20170411
  Receipt Date: 20170411
  Transmission Date: 20170830
  Serious: Yes (Hospitalization)
  Sender: FDA-Public Use
  Company Number: US-JNJFOC-PRIUS28502

PATIENT
  Age: 84 Year
  Sex: Female

DRUGS (4)
  1. HALDOL [Suspect]
     Active Substance: HALOPERIDOL
     Indication: AGITATION
     Route: 065
  2. PAXIL [Concomitant]
     Active Substance: PAROXETINE HYDROCHLORIDE
     Route: 065
  3. PREDNISONE. [Concomitant]
     Active Substance: PREDNISONE
     Route: 065
  4. HALDOL [Suspect]
     Active Substance: HALOPERIDOL
     Indication: ANXIETY
     Route: 065

REACTIONS (5)
  - Delusion [Not Recovered/Not Resolved]
  - Musculoskeletal stiffness [Unknown]
  - Hypertonia [Not Recovered/Not Resolved]
  - Psychotic disorder [Not Recovered/Not Resolved]
  - Hallucination [Not Recovered/Not Resolved]
